FAERS Safety Report 6963825 (Version 3)
Quarter: 2013Q1

REPORT INFORMATION
  Report Type: Report from Study
  Country: JP (occurrence: JP)
  Receive Date: 20090408
  Receipt Date: 20130325
  Transmission Date: 20140127
  Serious: Yes (Hospitalization)
  Sender: FDA-Public Use
  Company Number: JP-BRISTOL-MYERS SQUIBB COMPANY-14577712

PATIENT
  Age: 53 Year
  Sex: Male
  Weight: 46.8 kg

DRUGS (3)
  1. ERBITUX SOLN FOR INF 5MG/ML [Suspect]
     Indication: COLON CANCER
     Route: 041
     Dates: start: 20090217, end: 20090217
  2. RESTAMIN [Concomitant]
     Indication: PREMEDICATION
     Dosage: TAB
     Route: 048
     Dates: start: 20090217, end: 20090217
  3. DECADRON [Concomitant]
     Indication: PREMEDICATION
     Route: 041
     Dates: start: 20090217, end: 20090217

REACTIONS (2)
  - Purpura [Recovering/Resolving]
  - Acne [Recovering/Resolving]
